FAERS Safety Report 7409689-6 (Version None)
Quarter: 2011Q2

REPORT INFORMATION
  Report Type: 
  Country: None (occurrence: None)
  Receive Date: 20110412
  Receipt Date: 20110331
  Transmission Date: 20111010
  Serious: Yes (Hospitalization, Other)
  Sender: FDA-Public Use
  Company Number: US-JNJFOC-20110401840

PATIENT
  Sex: Female
  Weight: 59.88 kg

DRUGS (10)
  1. PREMARIN [Concomitant]
     Indication: NUTRITIONAL SUPPORT
     Route: 065
  2. FENTANYL-100 [Suspect]
     Indication: RADICULAR PAIN
     Route: 062
  3. PLAVIX [Concomitant]
     Indication: CARDIAC DISORDER
     Route: 065
  4. FENTANYL-100 [Suspect]
     Indication: RADICULAR PAIN
     Route: 062
  5. ZANTAC [Concomitant]
     Indication: GASTRIC DISORDER
     Route: 065
  6. LISINOPRIL [Concomitant]
     Indication: CARDIAC DISORDER
     Route: 065
  7. RANEXA [Concomitant]
     Indication: CARDIAC DISORDER
     Route: 065
  8. ZOCOR [Concomitant]
     Indication: BLOOD CHOLESTEROL
     Route: 065
  9. ATENOLOL [Concomitant]
     Indication: CARDIAC DISORDER
     Route: 065
  10. OXYCODONE [Concomitant]
     Indication: BREAKTHROUGH PAIN
     Route: 065

REACTIONS (8)
  - DYSPEPSIA [None]
  - FALL [None]
  - INTESTINAL PERFORATION [None]
  - DRUG INEFFECTIVE [None]
  - CORONARY ARTERY OCCLUSION [None]
  - BACK INJURY [None]
  - DIVERTICULITIS [None]
  - NEUROPATHY PERIPHERAL [None]
